FAERS Safety Report 8912419 (Version 1)
Quarter: 2012Q4

REPORT INFORMATION
  Report Type: 
  Country: US (occurrence: US)
  Receive Date: 20121115
  Receipt Date: 20121115
  Transmission Date: 20130627
  Serious: Yes (Other)
  Sender: FDA-Public Use
  Company Number: US-ASTRAZENECA-2012SE84855

PATIENT
  Age: 54 Year
  Sex: Female

DRUGS (3)
  1. SYMBICORT PMDI [Suspect]
     Indication: BRONCHITIS
     Route: 055
  2. SYMBICORT PMDI [Suspect]
     Indication: DYSPNOEA
     Route: 055
  3. SEROQUEL [Suspect]
     Indication: SLEEP DISORDER
     Route: 048

REACTIONS (5)
  - Pancreatitis [Unknown]
  - Hepatitis C [Unknown]
  - Malaise [Unknown]
  - Insomnia [Unknown]
  - Drug dose omission [Unknown]
